FAERS Safety Report 6333908-0 (Version None)
Quarter: 2009Q3

REPORT INFORMATION
  Report Type: 
  Country: None (occurrence: None)
  Receive Date: 20090829
  Receipt Date: 20090708
  Transmission Date: 20100115
  Serious: No
  Sender: FDA-Public Use
  Company Number: US-ABBOTT-09P-163-0584697-00

PATIENT
  Sex: Male
  Weight: 93.524 kg

DRUGS (12)
  1. SIMCOR [Suspect]
     Indication: BLOOD CHOLESTEROL INCREASED
     Dosage: 1000 MG/20 MG
     Dates: start: 20090630, end: 20090704
  2. SIMCOR [Suspect]
     Indication: BLOOD TRIGLYCERIDES INCREASED
  3. SIMCOR [Suspect]
     Indication: LOW DENSITY LIPOPROTEIN INCREASED
  4. SIMCOR [Suspect]
     Indication: HIGH DENSITY LIPOPROTEIN DECREASED
  5. SIMVASTATIN [Concomitant]
     Indication: BLOOD CHOLESTEROL INCREASED
     Route: 048
  6. SIMVASTATIN [Concomitant]
     Indication: BLOOD TRIGLYCERIDES INCREASED
  7. SIMVASTATIN [Concomitant]
     Indication: LOW DENSITY LIPOPROTEIN INCREASED
  8. SIMVASTATIN [Concomitant]
     Indication: LOW DENSITY LIPOPROTEIN DECREASED
  9. TRILIPIX [Concomitant]
     Indication: BLOOD CHOLESTEROL INCREASED
     Route: 048
     Dates: start: 20090706
  10. TRILIPIX [Concomitant]
     Indication: BLOOD TRIGLYCERIDES INCREASED
  11. TRILIPIX [Concomitant]
     Indication: LOW DENSITY LIPOPROTEIN INCREASED
  12. TRILIPIX [Concomitant]
     Indication: HIGH DENSITY LIPOPROTEIN DECREASED

REACTIONS (4)
  - ABDOMINAL PAIN [None]
  - FLUSHING [None]
  - MYALGIA [None]
  - URINE OUTPUT DECREASED [None]
